FAERS Safety Report 11156522 (Version 2)
Quarter: 2015Q3

REPORT INFORMATION
  Report Type: Report from Study
  Country: FR (occurrence: FR)
  Receive Date: 20150602
  Receipt Date: 20150702
  Transmission Date: 20151125
  Serious: Yes (Hospitalization)
  Sender: FDA-Public Use
  Company Number: FR-009507513-1505FRA015093

PATIENT
  Age: 63 Year
  Sex: Male

DRUGS (5)
  1. OLMESARTAN MEDOXOMIL. [Concomitant]
     Active Substance: OLMESARTAN MEDOXOMIL
     Dosage: DAILY DOSE 20 (UNIT UNSPECIFIED)
     Route: 048
     Dates: start: 20150202
  2. TERBINAFINE. [Concomitant]
     Active Substance: TERBINAFINE
     Dosage: DAILY DOSE 250 (UNIT UNSPECIFIED)
     Route: 048
     Dates: start: 20150304
  3. ETRAVIRINE [Suspect]
     Active Substance: ETRAVIRINE
     Indication: HIV INFECTION
     Dosage: 2 TIME A DAY, DAILY DOSE 400 (UNIT UNSPECIFIED), BID
     Dates: start: 20150218
  4. ROSUVASTATINE [Concomitant]
     Active Substance: ROSUVASTATIN
     Dosage: DAILY DOSE 20 (UNIT UNSPECIFIED)
     Route: 048
     Dates: start: 20150202
  5. RALTEGRAVIR POTASSIUM [Suspect]
     Active Substance: RALTEGRAVIR POTASSIUM
     Indication: HIV INFECTION
     Dosage: 2 TIME A DAY, DAILY DOSE 400 (UNIT UNSPECIFIED)
     Route: 048
     Dates: start: 20150218

REACTIONS (1)
  - Transient ischaemic attack [Recovering/Resolving]

NARRATIVE: CASE EVENT DATE: 20150523
